FAERS Safety Report 23191859 (Version 8)
Quarter: 2025Q4

REPORT INFORMATION
  Report Type: Report from Study
  Country: AR (occurrence: AR)
  Receive Date: 20231116
  Receipt Date: 20251204
  Transmission Date: 20260118
  Serious: Yes (Hospitalization, Other)
  Sender: NOVARTIS
  Company Number: AR-002147023-NVSC2021AR233757

PATIENT
  Age: 62 Year
  Sex: Female

DRUGS (6)
  1. KISQALI [Suspect]
     Active Substance: RIBOCICLIB SUCCINATE
     Indication: Breast cancer metastatic
     Dosage: 600 MG, QD
     Route: 048
     Dates: start: 20210915
  2. KISQALI [Suspect]
     Active Substance: RIBOCICLIB SUCCINATE
     Dosage: 600 MG, QD
     Route: 048
     Dates: end: 202509
  3. FEMARA [Suspect]
     Active Substance: LETROZOLE
     Indication: Breast cancer metastatic
     Dosage: 2.5 MG, QD
     Route: 048
     Dates: start: 20210915
  4. DENOSUMAB [Suspect]
     Active Substance: DENOSUMAB
     Indication: Breast cancer metastatic
     Dosage: UNK
     Route: 065
     Dates: start: 20210915, end: 202505
  5. ACETAMINOPHEN [Concomitant]
     Active Substance: ACETAMINOPHEN
     Indication: Product used for unknown indication
     Dosage: 0.5 DOSAGE FORM (1MG)
     Route: 065
  6. IBUPROFEN [Concomitant]
     Active Substance: IBUPROFEN
     Indication: Product used for unknown indication
     Dosage: 600 MG
     Route: 065

REACTIONS (30)
  - Pharyngitis [Recovering/Resolving]
  - Hypersensitivity [Recovering/Resolving]
  - Speech disorder [Unknown]
  - Sensation of foreign body [Unknown]
  - Mouth swelling [Unknown]
  - Jaw disorder [Unknown]
  - Feeding disorder [Unknown]
  - Mouth injury [Unknown]
  - Abscess [Recovering/Resolving]
  - Pain [Unknown]
  - Metastases to bone [Unknown]
  - Thrombosis [Unknown]
  - Necrosis [Unknown]
  - Dizziness [Unknown]
  - Bone pain [Unknown]
  - Dysphonia [Unknown]
  - Stress [Unknown]
  - Malaise [Unknown]
  - Nausea [Recovering/Resolving]
  - Headache [Unknown]
  - Drug ineffective [Unknown]
  - Rash [Unknown]
  - Contrast media reaction [Unknown]
  - Urticaria [Unknown]
  - Condition aggravated [Unknown]
  - Pruritus [Unknown]
  - Oral pain [Unknown]
  - Oral disorder [Unknown]
  - Device failure [Unknown]
  - Gingival pain [Unknown]

NARRATIVE: CASE EVENT DATE: 20230201
